FAERS Safety Report 5446396-3 (Version None)
Quarter: 2007Q3

REPORT INFORMATION
  Report Type: 
  Country: None (occurrence: None)
  Receive Date: 20070907
  Receipt Date: 20070828
  Transmission Date: 20080115
  Serious: Yes (Hospitalization)
  Sender: FDA-Public Use
  Company Number: AU-ROCHE-514313

PATIENT
  Age: 29 Year
  Sex: Male
  Weight: 66 kg

DRUGS (2)
  1. PEGASYS [Suspect]
     Indication: HEPATITIS C
     Dosage: FOR PEGASYS: ROUTE REPORTED AS SUBCUTANEOUS. STRENGTH: 180 MCG.
     Route: 050
     Dates: start: 20070327, end: 20070719
  2. PEGASYS [Suspect]
     Route: 050
     Dates: start: 20070731

REACTIONS (4)
  - COUGH [None]
  - MALAISE [None]
  - PULMONARY FIBROSIS [None]
  - PYREXIA [None]
